FAERS Safety Report 24239009 (Version 1)
Quarter: 2024Q3

REPORT INFORMATION
  Report Type: Report from Study
  Country: US (occurrence: US)
  Receive Date: 20240822
  Receipt Date: 20240822
  Transmission Date: 20241017
  Serious: No
  Sender: DR REDDYS
  Company Number: US-E2BLSMVVAL-CLI/USA/24/0011945

PATIENT
  Age: 31 Year
  Sex: Female

DRUGS (1)
  1. JAVYGTOR [Suspect]
     Active Substance: SAPROPTERIN DIHYDROCHLORIDE
     Indication: Product used for unknown indication
     Route: 048
     Dates: end: 20240807

REACTIONS (2)
  - Exposure during pregnancy [Not Recovered/Not Resolved]
  - Product dose omission issue [Not Recovered/Not Resolved]
